FAERS Safety Report 5078958-X (Version None)
Quarter: 2006Q3

REPORT INFORMATION
  Report Type: 
  Country: None (occurrence: None)
  Receive Date: 20060808
  Receipt Date: 20060721
  Transmission Date: 20061208
  Serious: Yes (Death, Other)
  Sender: FDA-Public Use
  Company Number: US200607000411

PATIENT
  Sex: Male

DRUGS (2)
  1. FORTEO [Suspect]
     Dates: start: 20050301, end: 20051030
  2. FORTEO [Concomitant]

REACTIONS (5)
  - DYSPHAGIA [None]
  - LUNG NEOPLASM MALIGNANT [None]
  - NODULE [None]
  - PULMONARY FUNCTION TEST DECREASED [None]
  - SWOLLEN TONGUE [None]
